FAERS Safety Report 13893914 (Version 1)
Quarter: 2017Q3

REPORT INFORMATION
  Report Type: Spontaneous
  Country: US (occurrence: US)
  Receive Date: 20170822
  Receipt Date: 20170822
  Transmission Date: 20171127
  Serious: Yes (Other)
  Sender: FDA-Public Use
  Company Number: US-PFIZER INC-2017363192

PATIENT
  Sex: Female

DRUGS (1)
  1. CELEBREX [Suspect]
     Active Substance: CELECOXIB
     Indication: ARTHRITIS
     Dosage: UNK
     Dates: end: 2015

REACTIONS (5)
  - Hypoacusis [Unknown]
  - Pain [Unknown]
  - Rheumatic fever [Unknown]
  - Myalgia [Unknown]
  - Gastric disorder [Unknown]
